FAERS Safety Report 11620491 (Version 1)
Quarter: 2015Q4

REPORT INFORMATION
  Report Type: Spontaneous
  Country: JP (occurrence: JP)
  Receive Date: 20151012
  Receipt Date: 20151012
  Transmission Date: 20160304
  Serious: Yes (Hospitalization)
  Sender: FDA-Public Use
  Company Number: JP-HQ SPECIALTY-JP-2015INT000500

PATIENT
  Age: 70 Year
  Sex: Female

DRUGS (4)
  1. FLUOROURACIL. [Suspect]
     Active Substance: FLUOROURACIL
     Indication: BREAST CANCER
     Dosage: 500 MG/M2, EVERY 3 WEEKS, 4 CYCLES
     Dates: start: 201011
  2. EPIRUBICIN [Suspect]
     Active Substance: EPIRUBICIN
     Indication: BREAST CANCER
     Dosage: 100 MG/M2, EVERY 3 WEEKS, 4 CYCLES
     Dates: start: 201011
  3. CYCLOPHOSPHAMIDE. [Suspect]
     Active Substance: CYCLOPHOSPHAMIDE
     Indication: BREAST CANCER
     Dosage: 500 MG/M2, EVERY 3 WEEKS, 4 CYCLES
     Dates: start: 201011
  4. PACLITAXEL. [Suspect]
     Active Substance: PACLITAXEL
     Indication: BREAST CANCER
     Dosage: UNK, 12 COURSES
     Dates: start: 201011

REACTIONS (14)
  - Oedema peripheral [Recovered/Resolved]
  - Cardiomyopathy [Recovered/Resolved]
  - Pyrexia [Unknown]
  - Diarrhoea [Unknown]
  - Pleural effusion [Recovered/Resolved]
  - Hypoproteinaemia [Recovering/Resolving]
  - Pseudomembranous colitis [Recovered/Resolved]
  - Decreased appetite [Unknown]
  - Cardiac failure congestive [Recovered/Resolved]
  - Dyspnoea [Recovered/Resolved]
  - Sinus tachycardia [Recovered/Resolved]
  - Respiratory failure [Recovering/Resolving]
  - Pulmonary congestion [Recovered/Resolved]
  - Arteriospasm coronary [Recovered/Resolved]

NARRATIVE: CASE EVENT DATE: 2011
